FAERS Safety Report 6976927-3 (Version None)
Quarter: 2010Q3

REPORT INFORMATION
  Report Type: 
  Country: None (occurrence: None)
  Receive Date: 20100910
  Receipt Date: 20090506
  Transmission Date: 20110219
  Serious: No
  Sender: FDA-Public Use
  Company Number: US-WYE-H09240209

PATIENT
  Sex: Female
  Weight: 65.83 kg

DRUGS (7)
  1. PRISTIQ [Suspect]
     Indication: DEPRESSION
     Route: 048
     Dates: start: 20090401
  2. RITODRINE HYDROCHLORIDE [Concomitant]
  3. HYDROXYCHLOROQUINE [Concomitant]
  4. TRILEPTAL [Concomitant]
  5. VITAMIN TAB [Concomitant]
  6. NAPROXEN [Concomitant]
  7. MAXALT [Concomitant]

REACTIONS (1)
  - PARAESTHESIA [None]
